FAERS Safety Report 17158684 (Version 1)
Quarter: 2019Q4

REPORT INFORMATION
  Report Type: Spontaneous
  Country: IT (occurrence: IT)
  Receive Date: 20191216
  Receipt Date: 20191216
  Transmission Date: 20200122
  Serious: Yes (Other)
  Sender: FDA-Public Use
  Company Number: NVSC2019IT063396

PATIENT
  Age: 18 Year
  Sex: Female

DRUGS (3)
  1. PARACETAMOL [Suspect]
     Active Substance: ACETAMINOPHEN
     Indication: INTENTIONAL SELF-INJURY
     Dosage: 20 DF TOTAL
     Route: 048
     Dates: start: 20191007, end: 20191007
  2. NAPROXEN SODIUM. [Concomitant]
     Active Substance: NAPROXEN SODIUM
     Indication: PRODUCT USED FOR UNKNOWN INDICATION
     Dosage: UNK
     Route: 065
  3. ZIRTEC [Suspect]
     Active Substance: CETIRIZINE HYDROCHLORIDE
     Indication: INTENTIONAL SELF-INJURY
     Dosage: 10 DF TOTAL
     Route: 048
     Dates: start: 20191007, end: 20191007

REACTIONS (1)
  - Toxicity to various agents [Recovering/Resolving]

NARRATIVE: CASE EVENT DATE: 20191007
